FAERS Safety Report 8044305-4 (Version None)
Quarter: 2012Q1

REPORT INFORMATION
  Report Type: 
  Country: None (occurrence: None)
  Receive Date: 20120113
  Receipt Date: 20120109
  Transmission Date: 20120608
  Serious: Yes (Hospitalization, Other)
  Sender: FDA-Public Use
  Company Number: US-BAYER-2011-118399

PATIENT
  Age: 52 Year
  Sex: Male
  Weight: 127.44 kg

DRUGS (3)
  1. AVELOX [Suspect]
     Indication: NASOPHARYNGITIS
     Dosage: UNK UNK, ONCE
     Route: 048
     Dates: start: 20111025, end: 20111025
  2. BETA BLOCKING AGENTS AND OTHER ANTIHYPERTENSI [Concomitant]
     Indication: HYPERTENSION
  3. ACE INHIBITOR NOS [Concomitant]
     Indication: HYPERTENSION

REACTIONS (5)
  - ANAPHYLACTIC REACTION [None]
  - SWELLING FACE [None]
  - BURNING SENSATION [None]
  - HYPERTENSION [None]
  - ANGIOEDEMA [None]
